FAERS Safety Report 8439581-X (Version None)
Quarter: 2012Q2

REPORT INFORMATION
  Report Type: 
  Country: None (occurrence: None)
  Receive Date: 20120615
  Receipt Date: 20120605
  Transmission Date: 20120825
  Serious: Yes (Life-Threatening, Other)
  Sender: FDA-Public Use
  Company Number: ES-JNJFOC-20120520521

PATIENT
  Sex: Male
  Weight: 104 kg

DRUGS (4)
  1. REMICADE [Suspect]
     Route: 042
  2. REMICADE [Suspect]
     Indication: HIDRADENITIS
     Route: 042
     Dates: start: 20120301
  3. REMICADE [Suspect]
     Indication: PYODERMA
     Route: 042
  4. REMICADE [Suspect]
     Route: 042
     Dates: start: 20120301

REACTIONS (1)
  - PULMONARY EMBOLISM [None]
